FAERS Safety Report 22540653 (Version 3)
Quarter: 2023Q2

REPORT INFORMATION
  Report Type: Report from Study
  Country: FI (occurrence: FI)
  Receive Date: 20230609
  Receipt Date: 20230630
  Transmission Date: 20230722
  Serious: Yes (Life-Threatening, Hospitalization)
  Sender: FDA-Public Use
  Company Number: FI-QUINTILES-2023-00800AA

PATIENT
  Age: 77 Year
  Sex: Female
  Weight: 65.5 kg

DRUGS (44)
  1. EPCORITAMAB [Suspect]
     Active Substance: EPCORITAMAB
     Indication: Diffuse large B-cell lymphoma stage IV
     Dosage: PRIMING DOSE: 0.16 MILLIGRAM, SINGLE
     Route: 058
     Dates: start: 20221125, end: 20221125
  2. EPCORITAMAB [Suspect]
     Active Substance: EPCORITAMAB
     Dosage: RE-PRIME DAY 1 (RPD1): PRIMING DOSE: 0.16 MILLIGRAM, SINGLE
     Route: 058
     Dates: start: 20221212, end: 20221212
  3. EPCORITAMAB [Suspect]
     Active Substance: EPCORITAMAB
     Dosage: RPD8: INTERMEDIATE DOSE: 0.8 MILLIGRAM, SINGLE
     Route: 058
     Dates: start: 20221219, end: 20221219
  4. EPCORITAMAB [Suspect]
     Active Substance: EPCORITAMAB
     Dosage: RPD15: FULL DOSE: 48 MILLIGRAM, WEEKLY
     Route: 058
     Dates: start: 20221227, end: 20221227
  5. EPCORITAMAB [Suspect]
     Active Substance: EPCORITAMAB
     Dosage: RPD22: FULL DOSE: 48 MILLIGRAM, WEEKLY
     Route: 058
     Dates: start: 20230111
  6. GEMCITABINE [Suspect]
     Active Substance: GEMCITABINE
     Indication: Diffuse large B-cell lymphoma stage IV
     Dosage: 1000 MILLIGRAM/SQ. METER, 1Q2W
     Route: 042
     Dates: start: 20221125, end: 20221125
  7. GEMCITABINE [Suspect]
     Active Substance: GEMCITABINE
     Dosage: 1000 MILLIGRAM/SQ. METER, 1Q2W
     Route: 042
     Dates: start: 20221227, end: 20221227
  8. OXALIPLATIN [Suspect]
     Active Substance: OXALIPLATIN
     Indication: Diffuse large B-cell lymphoma stage IV
     Dosage: 100 MILLIGRAM/SQ. METER, 1Q2W
     Route: 042
     Dates: start: 20221125, end: 20221125
  9. OXALIPLATIN [Suspect]
     Active Substance: OXALIPLATIN
     Dosage: 100 MILLIGRAM/SQ. METER, 1Q2W
     Route: 042
     Dates: start: 20221227, end: 20221227
  10. CETIRIZINE HYDROCHLORIDE [Concomitant]
     Active Substance: CETIRIZINE HYDROCHLORIDE
     Indication: Premedication
     Dosage: 10 MILLIGRAM, SINGLE
     Route: 048
     Dates: start: 20221125, end: 20221125
  11. CETIRIZINE HYDROCHLORIDE [Concomitant]
     Active Substance: CETIRIZINE HYDROCHLORIDE
     Dosage: 10 MILLIGRAM, SINGLE
     Route: 048
     Dates: start: 20221212, end: 20221212
  12. CETIRIZINE HYDROCHLORIDE [Concomitant]
     Active Substance: CETIRIZINE HYDROCHLORIDE
     Dosage: 10 MILLIGRAM, SINGLE
     Route: 048
     Dates: start: 20221219, end: 20221219
  13. CETIRIZINE HYDROCHLORIDE [Concomitant]
     Active Substance: CETIRIZINE HYDROCHLORIDE
     Dosage: 10 MILLIGRAM, SINGLE
     Route: 048
     Dates: start: 20230118, end: 20230118
  14. PANADOL [Concomitant]
     Active Substance: ACETAMINOPHEN
     Indication: Premedication
     Dosage: 1 GRAM, SINGLE
     Route: 048
     Dates: start: 20221125, end: 20221125
  15. PANADOL [Concomitant]
     Active Substance: ACETAMINOPHEN
     Dosage: 1 GRAM, SINGLE
     Route: 048
     Dates: start: 20221227, end: 20221227
  16. PANADOL [Concomitant]
     Active Substance: ACETAMINOPHEN
     Dosage: 1 GRAM, SINGLE
     Route: 048
     Dates: start: 20230118, end: 20230118
  17. DEXAMETHASONE [Concomitant]
     Active Substance: DEXAMETHASONE
     Indication: Prophylaxis
     Dosage: 15 MILLIGRAM, QD
     Route: 048
     Dates: start: 20221125, end: 20221127
  18. DEXAMETHASONE [Concomitant]
     Active Substance: DEXAMETHASONE
     Dosage: 15 MILLIGRAM, QD
     Route: 048
     Dates: start: 20221212, end: 20221215
  19. DEXAMETHASONE [Concomitant]
     Active Substance: DEXAMETHASONE
     Dosage: 15 MILLIGRAM, QD
     Route: 048
     Dates: start: 20221227, end: 20221230
  20. DEXAMETHASONE [Concomitant]
     Active Substance: DEXAMETHASONE
     Dosage: 15 MILLIGRAM, QD
     Route: 048
     Dates: start: 20230111, end: 20230114
  21. DEXAMETHASONE [Concomitant]
     Active Substance: DEXAMETHASONE
     Dosage: 8 MILLIGRAM, QD
     Route: 048
     Dates: start: 20230118, end: 20230120
  22. PREDNISOLONE [Concomitant]
     Active Substance: PREDNISOLONE
     Indication: Prophylaxis
     Dosage: 100 MILLIGRAM, SINGLE
     Route: 048
     Dates: start: 20221128, end: 20221128
  23. PREDNISOLONE [Concomitant]
     Active Substance: PREDNISOLONE
     Dosage: 100 MILLIGRAM, SINGLE
     Route: 048
     Dates: start: 20221215, end: 20221215
  24. ACETAMINOPHEN [Concomitant]
     Active Substance: ACETAMINOPHEN
     Indication: Premedication
     Dosage: 1000 MILLIGRAM, SINGLE
     Route: 048
     Dates: start: 20221212, end: 20221212
  25. PAMOL F [Concomitant]
     Indication: Premedication
     Dosage: 1 GRAM, SINGLE
     Route: 048
     Dates: start: 20221219, end: 20221219
  26. CETIRIZINE HYDROCHLORIDE [Concomitant]
     Active Substance: CETIRIZINE HYDROCHLORIDE
     Indication: Premedication
     Dosage: 10 MILLIGRAM, SINGLE
     Route: 048
     Dates: start: 20221227, end: 20221227
  27. BISOPROLOL [Concomitant]
     Active Substance: BISOPROLOL
     Indication: Hypertension
     Dosage: 2.5 MILLIGRAM, INTERMITTENT
     Route: 048
     Dates: start: 20221201
  28. COTRIM [Concomitant]
     Active Substance: SULFAMETHOXAZOLE\TRIMETHOPRIM
     Indication: Prophylaxis
     Dosage: 80/400 MILLIGRAM, THREE TIMES PER WEEK
     Route: 048
     Dates: start: 20220407
  29. DYNASTAT [Concomitant]
     Active Substance: PARECOXIB SODIUM
     Indication: Pyrexia
     Dosage: 40 MILLIGRAM, PRN
     Route: 042
     Dates: start: 20221201
  30. RACECADOTRIL [Concomitant]
     Active Substance: RACECADOTRIL
     Indication: Prophylaxis
     Dosage: 100 MILLIGRAM, PRN
     Route: 048
     Dates: start: 20221204
  31. CETIRIZINE HYDROCHLORIDE [Concomitant]
     Active Substance: CETIRIZINE HYDROCHLORIDE
     Indication: Prophylaxis
     Dosage: 10 MILLIGRAM, INTERMITTENT
     Route: 048
     Dates: start: 20221123
  32. LOPEX [Concomitant]
     Indication: Prophylaxis
     Dosage: 2.0 MILLIGRAM, PRN
     Route: 048
     Dates: start: 20221204
  33. NYSTATIN ORIFARM [Concomitant]
     Indication: Prophylaxis
     Dosage: 100000 INTERNATIONAL UNIT, QD (EVERY EVENING)
     Route: 048
     Dates: start: 20221201
  34. PARAMAX [PARACETAMOL] [Concomitant]
     Indication: Prophylaxis
     Dosage: 1000 MILLIGRAM, INTERMITTENT
     Route: 048
     Dates: start: 20221123
  35. PIPERACILLIN AND TAZOBACTAM [Concomitant]
     Active Substance: PIPERACILLIN SODIUM\TAZOBACTAM SODIUM
     Indication: Neutropenia
     Dosage: 4 GRAM, TID
     Route: 042
     Dates: start: 20221201, end: 20221206
  36. PIPERACILLIN AND TAZOBACTAM [Concomitant]
     Active Substance: PIPERACILLIN SODIUM\TAZOBACTAM SODIUM
     Indication: C-reactive protein increased
  37. PRIMPERAN [Concomitant]
     Active Substance: METOCLOPRAMIDE HYDROCHLORIDE
     Indication: Prophylaxis
     Dosage: 10 MILLIGRAM, PRN
     Route: 048
     Dates: start: 20220407
  38. METOPROLOL TARTRATE [Concomitant]
     Active Substance: METOPROLOL TARTRATE
     Indication: Atrial fibrillation
     Dosage: 1 MILLIGRAM, PRN
     Route: 042
     Dates: start: 20221203, end: 20221208
  39. AMINO ACIDS\DEXTROSE\ELECTROLYTES NOS\SOYBEAN OIL [Concomitant]
     Active Substance: AMINO ACIDS\DEXTROSE\ELECTROLYTES NOS\SOYBEAN OIL
     Indication: Diarrhoea
     Dosage: 986 MILLILITER, QD, CENTRAL
     Route: 050
     Dates: start: 20221203, end: 20221206
  40. PANTOPRAZOLE SODIUM [Concomitant]
     Active Substance: PANTOPRAZOLE SODIUM
     Dosage: 40 MILLIGRAM, PRN
     Route: 048
     Dates: start: 20221102
  41. VALACYCLOVIR HYDROCHLORIDE [Concomitant]
     Active Substance: VALACYCLOVIR HYDROCHLORIDE
     Indication: Prophylaxis
     Dosage: 500 MILLIGRAM, QD
     Route: 048
     Dates: start: 20220607
  42. ZOFRAN [Concomitant]
     Active Substance: ONDANSETRON HYDROCHLORIDE
     Indication: Prophylaxis
     Dosage: 8 MILLIGRAM, PRN
     Route: 048
     Dates: start: 20221125
  43. ZOFRAN [Concomitant]
     Active Substance: ONDANSETRON HYDROCHLORIDE
     Indication: Diarrhoea
     Dosage: 4 MILLIGRAM, PRN
     Route: 048
     Dates: start: 20221204
  44. NYSTATIN [Concomitant]
     Active Substance: NYSTATIN
     Indication: Mucosal infection
     Dosage: 1 MILLILITER, PRN
     Route: 048
     Dates: start: 20230107

REACTIONS (2)
  - Neutropenic infection [Recovered/Resolved]
  - White blood cell count decreased [Recovered/Resolved]

NARRATIVE: CASE EVENT DATE: 20230103
